FAERS Safety Report 7746280-6 (Version None)
Quarter: 2011Q3

REPORT INFORMATION
  Report Type: 
  Country: None (occurrence: None)
  Receive Date: 20110912
  Receipt Date: 20110912
  Transmission Date: 20111222
  Serious: No
  Sender: FDA-Public Use
  Company Number: None

PATIENT
  Age: 64 Year
  Sex: Female
  Weight: 78 kg

DRUGS (8)
  1. HYDROCHLOROTHIAZIDE [Concomitant]
  2. HYDROCODONE BITARTRATE [Suspect]
     Indication: PAIN
     Dosage: 5/SUB Q 6 PRN PO X1
     Route: 048
     Dates: start: 20110408
  3. LEVOTHYROXIDE [Concomitant]
  4. LEXAPRO [Concomitant]
  5. METOPROLOL TARTRATE [Suspect]
     Indication: HYPERTENSION
     Dosage: 25 MG BID PO X1 DOSE
     Route: 048
     Dates: start: 20110407
  6. DEPAKOTE [Concomitant]
  7. METOPROLOL TARTRATE [Concomitant]
  8. IBUPROFEN [Concomitant]

REACTIONS (2)
  - NAUSEA [None]
  - HYPOTENSION [None]
